FAERS Safety Report 22531110 (Version 1)
Quarter: 2023Q2

REPORT INFORMATION
  Report Type: Report from Study
  Country: US (occurrence: US)
  Receive Date: 20230607
  Receipt Date: 20230607
  Transmission Date: 20230722
  Serious: Yes (Hospitalization)
  Sender: FDA-Public Use
  Company Number: US-PFIZER INC-US-GBT-021544

PATIENT
  Age: 23 Year
  Sex: Male

DRUGS (22)
  1. VOXELOTOR [Suspect]
     Active Substance: VOXELOTOR
     Indication: Sickle cell disease
     Dosage: 1500 MG, 1X/DAY
     Route: 048
     Dates: start: 20220408
  2. VOXELOTOR [Suspect]
     Active Substance: VOXELOTOR
     Indication: Anaemia
  3. MS CONTIN [Concomitant]
     Active Substance: MORPHINE SULFATE
     Indication: Sickle cell disease
     Dosage: 60 MG, 2X/DAY
     Route: 048
     Dates: start: 20230314, end: 20230314
  4. MS CONTIN [Concomitant]
     Active Substance: MORPHINE SULFATE
     Dosage: 15 MG, 2X/DAY
     Route: 048
     Dates: start: 20210317, end: 20220331
  5. MS CONTIN [Concomitant]
     Active Substance: MORPHINE SULFATE
     Dosage: 30 MG, 2X/DAY
     Route: 048
     Dates: start: 20220331, end: 20220408
  6. MS CONTIN [Concomitant]
     Active Substance: MORPHINE SULFATE
     Dosage: 30 MG, 2X/DAY
     Route: 048
     Dates: start: 20220408, end: 20220531
  7. MS CONTIN [Concomitant]
     Active Substance: MORPHINE SULFATE
     Dosage: 60 MG, 2X/DAY
     Route: 048
     Dates: start: 20220531
  8. HYDREA [Concomitant]
     Active Substance: HYDROXYUREA
     Indication: Sickle cell disease
     Dosage: ALTERNATE 1500/2000;DOSE:
     Route: 048
     Dates: start: 20170719
  9. TYLENOL [Concomitant]
     Active Substance: ACETAMINOPHEN
     Indication: Sickle cell disease
     Dosage: 650 MG, 1X/DAY
     Route: 048
     Dates: start: 20211217
  10. ADAKVEO [CRIZANLIZUMAB] [Concomitant]
     Indication: Sickle cell disease
     Dosage: 5 MG/KG, Q4W
     Route: 042
     Dates: start: 20211217
  11. AMOXIL [Concomitant]
     Active Substance: AMOXICILLIN
     Indication: Prophylaxis
     Dosage: 250 MG, 2X/DAY
     Route: 048
     Dates: start: 20190322
  12. AMOXIL [Concomitant]
     Active Substance: AMOXICILLIN
     Indication: Asplenia
  13. NEURONTIN [Concomitant]
     Active Substance: GABAPENTIN
     Indication: Sickle cell disease
     Dosage: 300 MG, 2X/DAY
     Route: 048
     Dates: start: 20220215, end: 20220613
  14. NEURONTIN [Concomitant]
     Active Substance: GABAPENTIN
     Dosage: 600 MG, 2X/DAY
     Route: 048
     Dates: start: 20220809, end: 20230215
  15. NEURONTIN [Concomitant]
     Active Substance: GABAPENTIN
     Dosage: 600 MG, TID
     Route: 048
     Dates: start: 20230215
  16. HYDROXYUREA [Concomitant]
     Active Substance: HYDROXYUREA
     Indication: Sickle cell disease
     Dosage: 1500 MG, QOD
     Route: 048
     Dates: start: 20170719
  17. HYDROXYUREA [Concomitant]
     Active Substance: HYDROXYUREA
     Dosage: 2000 MG, QOD
     Route: 048
     Dates: start: 20170719
  18. FOLVITE [Concomitant]
     Active Substance: FOLIC ACID
     Indication: Sickle cell disease
     Dosage: 1 MG, 1X/DAY
     Route: 048
     Dates: start: 20121214
  19. CHOLECALCIFEROL [Concomitant]
     Active Substance: CHOLECALCIFEROL
     Indication: Vitamin D deficiency
     Dosage: 25 UG, 1X/DAY
     Route: 048
     Dates: start: 20221110
  20. OXYCODONE [Concomitant]
     Active Substance: OXYCODONE
     Indication: Sickle cell disease
     Dosage: 20 MG, PRN
     Route: 048
     Dates: start: 20230215
  21. APIXABAN [Concomitant]
     Active Substance: APIXABAN
     Indication: Deep vein thrombosis
     Dosage: 10 MG, 2X/DAY
     Route: 048
     Dates: start: 20230215, end: 20230222
  22. APIXABAN [Concomitant]
     Active Substance: APIXABAN
     Dosage: 5 MG, 2X/DAY
     Route: 048
     Dates: start: 20230222

REACTIONS (1)
  - Sickle cell anaemia with crisis [Recovered/Resolved]

NARRATIVE: CASE EVENT DATE: 20230310
